FAERS Safety Report 10993520 (Version 5)
Quarter: 2016Q2

REPORT INFORMATION
  Report Type: Spontaneous
  Country: CA (occurrence: CA)
  Receive Date: 20150407
  Receipt Date: 20160512
  Transmission Date: 20160815
  Serious: Yes (Other)
  Sender: FDA-Public Use
  Company Number: CA-ROCHE-1561023

PATIENT
  Age: 60 Year
  Sex: Female

DRUGS (16)
  1. ATROVENT [Concomitant]
     Active Substance: IPRATROPIUM BROMIDE
     Route: 065
     Dates: start: 20141103
  2. ADVAIR HFA [Concomitant]
     Active Substance: FLUTICASONE PROPIONATE\SALMETEROL XINAFOATE
     Dosage: 250/25 MCG
     Route: 065
  3. XOLAIR [Suspect]
     Active Substance: OMALIZUMAB
     Indication: ASTHMA
     Route: 058
     Dates: start: 20120813, end: 20140123
  4. VENTOLIN [Concomitant]
     Active Substance: ALBUTEROL SULFATE
     Route: 065
     Dates: start: 20141103
  5. VITAMIN D3 [Concomitant]
     Active Substance: CHOLECALCIFEROL
  6. XOLAIR [Suspect]
     Active Substance: OMALIZUMAB
     Indication: ASTHMA
     Route: 058
     Dates: start: 20140123, end: 20140123
  7. PULMICORT NEBULIZER [Concomitant]
     Dosage: 0.5/2MG/ML
     Route: 065
  8. RANITIDINE. [Concomitant]
     Active Substance: RANITIDINE
     Route: 065
  9. PREVACID [Concomitant]
     Active Substance: LANSOPRAZOLE
  10. SINGULAIR [Concomitant]
     Active Substance: MONTELUKAST SODIUM
     Route: 065
  11. VENTOLIN HFA [Concomitant]
     Active Substance: ALBUTEROL SULFATE
     Route: 065
  12. PULMICORT TURBUHALER [Concomitant]
     Active Substance: BUDESONIDE
     Dosage: 2 MG/ML
     Route: 065
     Dates: start: 20141103
  13. LANSOPRAZOLE. [Concomitant]
     Active Substance: LANSOPRAZOLE
     Route: 065
  14. COVERSYL [Concomitant]
     Active Substance: PERINDOPRIL
  15. PULMICORT NEBULIZER [Concomitant]
     Dosage: 0.5/2 MG/ML
     Route: 065
     Dates: start: 20141103
  16. SPIRIVA [Concomitant]
     Active Substance: TIOTROPIUM BROMIDE MONOHYDRATE
     Route: 065

REACTIONS (17)
  - Chest pain [Unknown]
  - Vocal cord disorder [Unknown]
  - Middle insomnia [Unknown]
  - Dry mouth [Unknown]
  - Nasal dryness [Unknown]
  - House dust allergy [Unknown]
  - Forced expiratory volume decreased [Unknown]
  - Drug ineffective [Unknown]
  - Oropharyngeal pain [Unknown]
  - Eosinophil count increased [Unknown]
  - Fatigue [Unknown]
  - Blood pressure increased [Unknown]
  - Nasopharyngitis [Unknown]
  - Gait disturbance [Recovering/Resolving]
  - Cough [Unknown]
  - Asthma [Unknown]
  - Back pain [Unknown]

NARRATIVE: CASE EVENT DATE: 20140917
